FAERS Safety Report 9692604 (Version 6)
Quarter: 2016Q1

REPORT INFORMATION
  Report Type: Spontaneous
  Country: JP (occurrence: JP)
  Receive Date: 20131118
  Receipt Date: 20160324
  Transmission Date: 20160526
  Serious: Yes (Other)
  Sender: FDA-Public Use
  Company Number: PHHY2013JP098993

PATIENT
  Age: 71 Year
  Sex: Male

DRUGS (12)
  1. FERRUM [Concomitant]
     Active Substance: FERROUS FUMARATE
     Dosage: 200 MG, QD
     Route: 065
     Dates: start: 20080109
  2. GLIVEC [Suspect]
     Active Substance: IMATINIB MESYLATE
     Dosage: 400 MG, QD
     Route: 048
     Dates: start: 20071227, end: 20121121
  3. FERRUM [Concomitant]
     Active Substance: FERROUS FUMARATE
     Indication: RED BLOOD CELL COUNT DECREASED
     Dosage: 200 MG, QD
     Route: 065
     Dates: start: 20061129, end: 20070131
  4. GLIVEC [Suspect]
     Active Substance: IMATINIB MESYLATE
     Dosage: 600 MG, QD
     Route: 048
     Dates: start: 20070628, end: 20071128
  5. GLIVEC [Suspect]
     Active Substance: IMATINIB MESYLATE
     Dosage: 300 MG, QD
     Route: 048
     Dates: start: 20071205, end: 20071226
  6. NORVASC [Concomitant]
     Active Substance: AMLODIPINE BESYLATE
     Dosage: 5 MG, QD
     Route: 048
     Dates: start: 20101210
  7. GLIVEC [Suspect]
     Active Substance: IMATINIB MESYLATE
     Indication: CHRONIC MYELOID LEUKAEMIA
     Dosage: 400 MG, QD
     Route: 048
     Dates: start: 20030115, end: 20070627
  8. FERRUM [Concomitant]
     Active Substance: FERROUS FUMARATE
     Indication: HAEMATOCRIT DECREASED
     Dosage: 100 MG, QD
     Route: 065
     Dates: start: 20070201, end: 20080108
  9. LAC-B [Concomitant]
     Active Substance: BIFIDOBACTERIUM SPP.
     Indication: PROPHYLAXIS
     Dosage: 1 G, TID
     Route: 048
     Dates: start: 20030115
  10. NORVASC [Concomitant]
     Active Substance: AMLODIPINE BESYLATE
     Indication: HYPERTENSION
     Dosage: 5 MG, QD
     Route: 048
     Dates: start: 20060418, end: 20070627
  11. FERRUM [Concomitant]
     Active Substance: FERROUS FUMARATE
     Dosage: UNK (CONTINUED AT 100  TO 200MG DAILY)
     Route: 065
  12. NORVASC [Concomitant]
     Active Substance: AMLODIPINE BESYLATE
     Dosage: 2.5 MG, QD
     Route: 048
     Dates: start: 20060628, end: 20101209

REACTIONS (5)
  - Gastric polyps [Unknown]
  - Erythema [Unknown]
  - Gastrointestinal haemorrhage [Recovered/Resolved]
  - Gastric antral vascular ectasia [Recovered/Resolved]
  - Gastritis [Unknown]

NARRATIVE: CASE EVENT DATE: 20061129
